FAERS Safety Report 6576503-0 (Version None)
Quarter: 2010Q1

REPORT INFORMATION
  Report Type: 
  Country: None (occurrence: None)
  Receive Date: 20100210
  Receipt Date: 20100202
  Transmission Date: 20100710
  Serious: Yes (Death)
  Sender: FDA-Public Use
  Company Number: JP-ASTRAZENECA-2010SE00545

PATIENT
  Age: 28105 Day
  Sex: Female
  Weight: 32 kg

DRUGS (2)
  1. ECARD COMBINATION [Suspect]
     Indication: HYPERTENSION
     Route: 048
     Dates: start: 20090730
  2. FERROMIA [Concomitant]
     Indication: IRON DEFICIENCY ANAEMIA
     Route: 048
     Dates: start: 20090709, end: 20091021

REACTIONS (1)
  - MYOCARDIAL INFARCTION [None]
